FAERS Safety Report 20495645 (Version 1)
Quarter: 2022Q1

REPORT INFORMATION
  Report Type: Other
  Country: AU (occurrence: AU)
  Receive Date: 20220221
  Receipt Date: 20220221
  Transmission Date: 20220423
  Serious: Yes (Life-Threatening, Hospitalization)
  Sender: FDA-Public Use
  Company Number: AU-002147023-NVSC2021AU190390

PATIENT
  Sex: Female

DRUGS (2)
  1. XOLAIR [Suspect]
     Active Substance: OMALIZUMAB
     Indication: Angioedema
     Route: 065
  2. XOLAIR [Suspect]
     Active Substance: OMALIZUMAB
     Dosage: 150 MG (EVERY 10 DAYS (I.E. 3X150 MG PER MONTH)
     Route: 058
     Dates: start: 202012, end: 20220124

REACTIONS (8)
  - Anaphylactic reaction [Recovered/Resolved]
  - Throat tightness [Unknown]
  - Dyspnoea [Unknown]
  - Angioedema [Unknown]
  - Drug hypersensitivity [Unknown]
  - Swelling [Unknown]
  - Off label use [Unknown]
  - Off label use [Unknown]

NARRATIVE: CASE EVENT DATE: 20210124
